FAERS Safety Report 13183046 (Version 1)
Quarter: 2017Q1

REPORT INFORMATION
  Report Type: Spontaneous
  Country: BR (occurrence: BR)
  Receive Date: 20170203
  Receipt Date: 20170203
  Transmission Date: 20170428
  Serious: Yes (Other)
  Sender: FDA-Public Use
  Company Number: BR-ALEXION-A201700933

PATIENT
  Age: 37 Year
  Sex: Female

DRUGS (3)
  1. SOLIRIS [Suspect]
     Active Substance: ECULIZUMAB
     Dosage: 900 MG, QW
     Route: 042
  2. BENZETACIL                         /00000904/ [Concomitant]
     Active Substance: PENICILLIN G BENZATHINE
     Indication: ANTIBIOTIC PROPHYLAXIS
     Dosage: 1200000 UNITS, EVERY 21 DAYS
     Route: 030
     Dates: start: 20161025
  3. SOLIRIS [Suspect]
     Active Substance: ECULIZUMAB
     Indication: PAROXYSMAL NOCTURNAL HAEMOGLOBINURIA
     Dosage: 600 MG, QW
     Route: 042
     Dates: start: 20130422, end: 20130514

REACTIONS (1)
  - Biopsy bone marrow [Recovered/Resolved]

NARRATIVE: CASE EVENT DATE: 20161214
